FAERS Safety Report 7819551-2 (Version None)
Quarter: 2011Q4

REPORT INFORMATION
  Report Type: 
  Country: None (occurrence: None)
  Receive Date: 20111018
  Receipt Date: 20111011
  Transmission Date: 20120403
  Serious: Yes (Other)
  Sender: FDA-Public Use
  Company Number: US-PFIZER INC-2011243378

PATIENT
  Sex: Male

DRUGS (1)
  1. GUAIFENESIN [Suspect]
     Indication: NASOPHARYNGITIS
     Dosage: UNK
     Route: 065

REACTIONS (3)
  - NASOPHARYNGITIS [None]
  - PAIN [None]
  - HAEMATEMESIS [None]
